FAERS Safety Report 6288048-6 (Version None)
Quarter: 2009Q3

REPORT INFORMATION
  Report Type: 
  Country: None (occurrence: None)
  Receive Date: 20090729
  Receipt Date: 20090717
  Transmission Date: 20100115
  Serious: Yes (Hospitalization, Other)
  Sender: FDA-Public Use
  Company Number: PHHY2009GB20947

PATIENT
  Sex: Male

DRUGS (4)
  1. CLOZARIL [Suspect]
     Indication: SCHIZOPHRENIA
     Dosage: 500 MG, DAILY
     Route: 048
     Dates: start: 19991124, end: 20090526
  2. BENZODIAZEPINES [Concomitant]
  3. SEDATIVES [Concomitant]
  4. HEROIN [Concomitant]

REACTIONS (12)
  - ANXIETY [None]
  - FEELING OF BODY TEMPERATURE CHANGE [None]
  - GROIN ABSCESS [None]
  - INFECTION [None]
  - INSOMNIA [None]
  - NASOPHARYNGITIS [None]
  - NEUTROPHIL COUNT DECREASED [None]
  - OROPHARYNGEAL PAIN [None]
  - PSYCHOTIC DISORDER [None]
  - RHINORRHOEA [None]
  - WHITE BLOOD CELL COUNT DECREASED [None]
  - WOUND [None]
